FAERS Safety Report 17072057 (Version 1)
Quarter: 2019Q4

REPORT INFORMATION
  Report Type: Spontaneous
  Country: US (occurrence: US)
  Receive Date: 20191125
  Receipt Date: 20191125
  Transmission Date: 20200122
  Serious: Yes (Hospitalization)
  Sender: FDA-Public Use
  Company Number: US-AMNEAL PHARMACEUTICALS-2019-AMRX-02716

PATIENT
  Age: 37 Year
  Sex: Female
  Weight: 104 kg

DRUGS (6)
  1. ELAGOLIX [Suspect]
     Active Substance: ELAGOLIX
     Indication: ENDOMETRIOSIS
     Dosage: 2 TABLETS, QD
     Route: 048
     Dates: start: 20190621, end: 20191026
  2. PAXIL [PIROXICAM] [Concomitant]
     Active Substance: PIROXICAM
     Indication: ANXIETY
     Dosage: UNK, QD
     Route: 048
     Dates: start: 2017
  3. EXCEDRIN MIGRAINE [Concomitant]
     Active Substance: ACETAMINOPHEN\ASPIRIN\CAFFEINE
     Indication: MIGRAINE
     Dosage: 1 TABLETS
     Route: 048
     Dates: start: 2005
  4. VICODIN [Concomitant]
     Active Substance: ACETAMINOPHEN\HYDROCODONE BITARTRATE
     Indication: ANALGESIC THERAPY
     Dosage: UNK
     Route: 065
     Dates: start: 20180718
  5. ACTIVELLA [Suspect]
     Active Substance: ESTRADIOL\NORETHINDRONE ACETATE
     Indication: ENDOMETRIOSIS
     Dosage: 1 TABLETS, QD
     Route: 048
     Dates: start: 20190621
  6. ELAGOLIX [Suspect]
     Active Substance: ELAGOLIX
     Dosage: 2 TABLETS, QD
     Route: 048
     Dates: start: 20191028

REACTIONS (1)
  - Inflammatory bowel disease [Recovered/Resolved]

NARRATIVE: CASE EVENT DATE: 20191027
